FAERS Safety Report 9380090 (Version 2)
Quarter: 2013Q3

REPORT INFORMATION
  Report Type: Report from Study
  Country: NL (occurrence: NL)
  Receive Date: 20130702
  Receipt Date: 20130716
  Transmission Date: 20140515
  Serious: Yes (Hospitalization)
  Sender: FDA-Public Use
  Company Number: NL-CELGENEUS-114-50794-13063891

PATIENT
  Age: 68 Year
  Sex: Male
  Weight: 85 kg

DRUGS (2)
  1. VIDAZA [Suspect]
     Indication: ACUTE MYELOID LEUKAEMIA
     Route: 058
     Dates: start: 20130527
  2. METFORMIN [Concomitant]
     Indication: DIABETES MELLITUS
     Dosage: 1500 MILLIGRAM
     Route: 048

REACTIONS (1)
  - Circulatory collapse [Recovered/Resolved]
